FAERS Safety Report 20516455 (Version 1)
Quarter: 2022Q1

REPORT INFORMATION
  Report Type: Spontaneous
  Country: CA (occurrence: CA)
  Receive Date: 20220225
  Receipt Date: 20220225
  Transmission Date: 20220423
  Serious: Yes (Life-Threatening, Hospitalization)
  Sender: FDA-Public Use
  Company Number: CA-TEVA-2022-CA-2009537

PATIENT
  Age: 13 Year
  Sex: Male
  Weight: 50 kg

DRUGS (51)
  1. ETOPOSIDE [Suspect]
     Active Substance: ETOPOSIDE
     Indication: Cord blood transplant therapy
     Route: 041
  2. ACETAMINOPHEN [Concomitant]
     Active Substance: ACETAMINOPHEN
  3. ACYCLOVIR [Concomitant]
     Active Substance: ACYCLOVIR
  4. ALTEPLASE (T-PA) [Concomitant]
  5. AMITRIPTYLINE [Concomitant]
     Active Substance: AMITRIPTYLINE
  6. AMLODIPINE [Concomitant]
     Active Substance: AMLODIPINE BESYLATE
     Route: 065
  7. AMPHOTERICIN B [Concomitant]
     Active Substance: AMPHOTERICIN B
  8. BUDESONIDE [Concomitant]
     Active Substance: BUDESONIDE
  9. CALCIUM [Concomitant]
     Active Substance: CALCIUM
  10. CEFTAZIDIME [Concomitant]
     Active Substance: CEFTAZIDIME
  11. CHOLECALCIFEROL [Concomitant]
     Active Substance: CHOLECALCIFEROL
  12. CLONIDINE [Concomitant]
     Active Substance: CLONIDINE
  13. DICYCLOMINE HYDROCHLORIDE [Concomitant]
     Active Substance: DICYCLOMINE HYDROCHLORIDE
  14. DIMENHYDRINATE [Concomitant]
     Active Substance: DIMENHYDRINATE
  15. DIPHENHYDRAMINE [Concomitant]
     Active Substance: DIPHENHYDRAMINE
  16. DOMPERIDONE [Concomitant]
     Active Substance: DOMPERIDONE
  17. FAMOTIDINE [Concomitant]
     Active Substance: FAMOTIDINE
  18. FLUCONAZOLE [Concomitant]
     Active Substance: FLUCONAZOLE
  19. FUROSEMIDE [Concomitant]
     Active Substance: FUROSEMIDE
  20. GABAPENTIN [Concomitant]
     Active Substance: GABAPENTIN
  21. GRANULOCYTE COLONY-STIMULATING FACTOR NOS [Concomitant]
     Active Substance: GRANULOCYTE COLONY-STIMULATING FACTOR NOS
  22. INSULIN NOS [Concomitant]
     Active Substance: INSULIN NOS
  23. RUXOLITINIB [Concomitant]
     Active Substance: RUXOLITINIB
  24. LANSOPRAZOLE [Concomitant]
     Active Substance: LANSOPRAZOLE
  25. LIDOCAINE [Concomitant]
     Active Substance: LIDOCAINE
  26. LORAZEPAM [Concomitant]
     Active Substance: LORAZEPAM
     Route: 065
  27. MAGNESIUM [Concomitant]
     Active Substance: MAGNESIUM
  28. MEROPENEM [Concomitant]
     Active Substance: MEROPENEM
  29. METHYLPREDNISOLONE [Concomitant]
     Active Substance: METHYLPREDNISOLONE
  30. METOCLOPRAMIDE [Concomitant]
     Active Substance: METOCLOPRAMIDE
  31. METRONIDAZOLE [Concomitant]
     Active Substance: METRONIDAZOLE
  32. MYCAMINE [Concomitant]
     Active Substance: MICAFUNGIN SODIUM
  33. MYCOPHENOLATE MOFETIL [Concomitant]
     Active Substance: MYCOPHENOLATE MOFETIL
  34. NALOXONE [Concomitant]
     Active Substance: NALOXONE
  35. NIFEDIPINE [Concomitant]
     Active Substance: NIFEDIPINE
  36. OLANZAPINE [Concomitant]
     Active Substance: OLANZAPINE
  37. ONDANSETRON [Concomitant]
     Active Substance: ONDANSETRON
  38. OXCARBAZEPINE [Concomitant]
     Active Substance: OXCARBAZEPINE
  39. PANTOPRAZOLE [Concomitant]
     Active Substance: PANTOPRAZOLE
  40. PIPERACILLIN SODIUM\TAZOBACTAM SODIUM [Concomitant]
     Active Substance: PIPERACILLIN SODIUM\TAZOBACTAM SODIUM
  41. POLYETHYLENE GLYCOL [Concomitant]
     Active Substance: POLYETHYLENE GLYCOL
  42. POSACONAZOLE [Concomitant]
     Active Substance: POSACONAZOLE
  43. POTASSIUM [Concomitant]
     Active Substance: POTASSIUM
  44. PREDNISONE [Concomitant]
     Active Substance: PREDNISONE
  45. LAPINE T-LYMPHOCYTE IMMUNE GLOBULIN [Concomitant]
     Active Substance: LAPINE T-LYMPHOCYTE IMMUNE GLOBULIN
  46. CYCLOSPORINE [Concomitant]
     Active Substance: CYCLOSPORINE
  47. SUCRALFATE [Concomitant]
     Active Substance: SUCRALFATE
  48. TACROLIMUS [Concomitant]
     Active Substance: TACROLIMUS
  49. URSODIOL [Concomitant]
     Active Substance: URSODIOL
  50. VALACYCLOVIR [Concomitant]
     Active Substance: VALACYCLOVIR HYDROCHLORIDE
  51. VANCOMYCIN [Concomitant]
     Active Substance: VANCOMYCIN

REACTIONS (2)
  - Mucosal inflammation [Recovered/Resolved]
  - Venoocclusive liver disease [Recovered/Resolved]
